FAERS Safety Report 7966868-7 (Version None)
Quarter: 2011Q4

REPORT INFORMATION
  Report Type: 
  Country: None (occurrence: None)
  Receive Date: 20111209
  Receipt Date: 20111205
  Transmission Date: 20120403
  Serious: No
  Sender: FDA-Public Use
  Company Number: US-PFIZER INC-2011296201

PATIENT

DRUGS (1)
  1. NORVASC [Suspect]
     Dosage: 5 MG, UNK

REACTIONS (8)
  - MALAISE [None]
  - VISION BLURRED [None]
  - DYSPEPSIA [None]
  - VOMITING [None]
  - HEADACHE [None]
  - PRODUCT COLOUR ISSUE [None]
  - CHEST PAIN [None]
  - DYSPNOEA [None]
